FAERS Safety Report 4977107-3 (Version None)
Quarter: 2006Q2

REPORT INFORMATION
  Report Type: 
  Country: None (occurrence: None)
  Receive Date: 20060412
  Receipt Date: 20060406
  Transmission Date: 20061013
  Serious: Yes (Other)
  Sender: FDA-Public Use
  Company Number: HQWYE689607APR06

PATIENT
  Sex: Male

DRUGS (2)
  1. EFFEXOR XR [Suspect]
     Dosage: SEE  IMAGE
     Route: 048
     Dates: start: 20060206, end: 20060301
  2. EFFEXOR XR [Suspect]
     Dosage: SEE  IMAGE
     Route: 048
     Dates: start: 20060301

REACTIONS (3)
  - DRUG INEFFECTIVE [None]
  - MERYCISM [None]
  - SELF-INJURIOUS IDEATION [None]
